FAERS Safety Report 21371503 (Version 1)
Quarter: 2022Q3

REPORT INFORMATION
  Report Type: Spontaneous
  Country: US (occurrence: US)
  Receive Date: 20220923
  Receipt Date: 20220923
  Transmission Date: 20221027
  Serious: Yes (Other)
  Sender: FDA-Public Use
  Company Number: US-PFIZER INC-PV202200069352

PATIENT
  Age: 76 Year
  Sex: Female

DRUGS (1)
  1. IBRANCE [Suspect]
     Active Substance: PALBOCICLIB
     Indication: Breast cancer female
     Dosage: 1 TABLET (75MG TOTAL) DAILY WITH FOOD AS DIRECTED FOR 21 DAYS FOLLOWED BY 7 DAYS OFF THERAPY
     Route: 048

REACTIONS (1)
  - Neutropenia [Unknown]
